FAERS Safety Report 7057666-X (Version None)
Quarter: 2010Q4

REPORT INFORMATION
  Report Type: 
  Country: None (occurrence: None)
  Receive Date: 20101022
  Receipt Date: 20101013
  Transmission Date: 20110411
  Serious: Yes (Hospitalization)
  Sender: FDA-Public Use
  Company Number: FI-PFIZER INC-2010129737

PATIENT
  Age: 30 Year
  Sex: Male

DRUGS (6)
  1. SALAZOPYRIN [Suspect]
     Indication: ANKYLOSING SPONDYLITIS
     Dosage: 500 MG, 1X/DAY
     Dates: start: 20100815, end: 20100821
  2. SALAZOPYRIN [Suspect]
     Indication: SPONDYLOARTHROPATHY
     Dosage: 1000MG + 500MG DAILY
     Dates: start: 20100822, end: 20100828
  3. SALAZOPYRIN [Suspect]
     Dosage: 1000 MG, 2X/DAY
     Dates: start: 20100829, end: 20100927
  4. ARCOXIA [Concomitant]
     Dosage: 90 MG, 1X/DAY
  5. PANADOL [Concomitant]
     Dosage: AS NEEDED
  6. BURANA [Concomitant]
     Dosage: AS NEEDED

REACTIONS (2)
  - NASOPHARYNGITIS [None]
  - NEUTROPENIA [None]
